FAERS Safety Report 23815857 (Version 1)
Quarter: 2024Q2

REPORT INFORMATION
  Report Type: Spontaneous
  Country: PL (occurrence: PL)
  Receive Date: 20240503
  Receipt Date: 20240503
  Transmission Date: 20240715
  Serious: Yes (Life-Threatening, Hospitalization, Other)
  Sender: FDA-Public Use
  Company Number: PL-BRISTOL-MYERS SQUIBB COMPANY-2024-019965

PATIENT
  Age: 69 Year
  Sex: Male

DRUGS (11)
  1. SPRYCEL [Suspect]
     Active Substance: DASATINIB
     Indication: Chronic myeloid leukaemia
     Dates: start: 2017
  2. SPRYCEL [Suspect]
     Active Substance: DASATINIB
     Dosage: FREQUENCY: EVERY OTHER DAY
     Route: 048
     Dates: start: 2019
  3. SPRYCEL [Suspect]
     Active Substance: DASATINIB
     Dates: start: 20210423
  4. ASPIRIN [Concomitant]
     Active Substance: ASPIRIN
     Indication: Minimum inhibitory concentration
     Route: 048
     Dates: start: 2013
  5. AMIODARONE HYDROCHLORIDE [Concomitant]
     Active Substance: AMIODARONE HYDROCHLORIDE
     Indication: Headache
     Route: 048
     Dates: start: 2013
  6. AMIODARONE HYDROCHLORIDE [Concomitant]
     Active Substance: AMIODARONE HYDROCHLORIDE
     Indication: Minimum inhibitory concentration
  7. FUROSEMIDE SODIUM [Concomitant]
     Active Substance: FUROSEMIDE SODIUM
     Indication: Cardiac failure
     Route: 048
     Dates: start: 2015
  8. POTASSIUM CHLORIDE [Concomitant]
     Active Substance: POTASSIUM CHLORIDE
     Indication: Polyuria
     Route: 048
     Dates: start: 2015
  9. SPIRONOLACTONE [Concomitant]
     Active Substance: SPIRONOLACTONE
     Indication: Cardiac failure
     Route: 048
     Dates: start: 2015
  10. ALLOPURINOL [Concomitant]
     Active Substance: ALLOPURINOL
     Indication: Hyperuricaemia
     Route: 048
     Dates: start: 2016
  11. ALLORIS [Concomitant]
     Indication: Minimum inhibitory concentration
     Route: 048
     Dates: start: 2013

REACTIONS (4)
  - Pleural effusion [Unknown]
  - Off label use [Unknown]
  - Haemothorax [Recovering/Resolving]
  - Chronic respiratory failure [Unknown]

NARRATIVE: CASE EVENT DATE: 20210101
